FAERS Safety Report 10376036 (Version 1)
Quarter: 2014Q1

REPORT INFORMATION
  Report Type: Spontaneous
  Country: US (occurrence: None)
  Receive Date: 20140306
  Receipt Date: 20140306
  Transmission Date: 20141002
  Serious: Yes (Other)
  Sender: FDA-Public Use
  Company Number: 163-21880-13122118

PATIENT
  Age: 90 Year
  Sex: Female
  Weight: 44.45 kg

DRUGS (11)
  1. REVLIMID (LENALIDOMIDE) (5 MILLIGRAM, CAPSULES) [Suspect]
     Indication: MYELODYSPLASTIC SYNDROME
     Dosage: 5 MG, 28 IN 28 D, PO
     Route: 048
     Dates: start: 201202, end: 201310
  2. AZITHROMYCIN(AZITHROMYCIN) [Concomitant]
  3. DONDRIL(DONEPEZIL) [Concomitant]
  4. APAP(PARACETAMOL) [Concomitant]
  5. SPIRIVA(TIOTROPIUM BROMIDE) [Concomitant]
  6. ZYRTEC(CETIRIZINE HYDROCHLORIDE) [Concomitant]
  7. PLAQUENIL(HYDROXYCHLOROQUINE PHOSPHATE) [Concomitant]
  8. FELODIPINE(FELODIPINE) [Concomitant]
  9. ZOFRAN(ONDANSETRON HYDROCHLORIDE) [Concomitant]
  10. NORCO(VICODIN) [Concomitant]
  11. TRANSFUSIONS (BLOOD AND RELATED PRODUCTS) [Concomitant]

REACTIONS (2)
  - Full blood count decreased [None]
  - Diarrhoea [None]
